FAERS Safety Report 15433819 (Version 1)
Quarter: 2018Q3

REPORT INFORMATION
  Report Type: Spontaneous
  Country: DE (occurrence: DE)
  Receive Date: 20180927
  Receipt Date: 20180927
  Transmission Date: 20181010
  Serious: Yes (Hospitalization)
  Sender: FDA-Public Use
  Company Number: DE-009507513-1809DEU012299

PATIENT
  Age: 67 Year
  Sex: Male
  Weight: 80 kg

DRUGS (1)
  1. PEMBROLIZUMAB. [Suspect]
     Active Substance: PEMBROLIZUMAB
     Indication: TRANSITIONAL CELL CARCINOMA
     Dosage: 200 MG, UNK (GIVING 6 CYCLES)
     Dates: start: 20180417, end: 20180808

REACTIONS (4)
  - Pneumonitis [Unknown]
  - Dyspnoea [Unknown]
  - Pleural effusion [Unknown]
  - Pulmonary embolism [Unknown]

NARRATIVE: CASE EVENT DATE: 20180824
